FAERS Safety Report 22594385 (Version 2)
Quarter: 2023Q4

REPORT INFORMATION
  Report Type: Spontaneous
  Country: PL (occurrence: PL)
  Receive Date: 20230613
  Receipt Date: 20231017
  Transmission Date: 20240110
  Serious: Yes (Other)
  Sender: FDA-Public Use
  Company Number: PL-CELLTRION INC.-2023PL011762

PATIENT

DRUGS (1)
  1. RITUXIMAB [Suspect]
     Active Substance: RITUXIMAB
     Indication: Neuromyelitis optica spectrum disorder
     Dosage: INITIAL DOSE OF 2 X 1000 MG INFUSED 2 WEEKS APART, MAINTENANCE DOSE: INFUSION OF 1000 MG EVERY 6 MON
     Route: 042

REACTIONS (7)
  - Dystonia [Unknown]
  - Paresis [Unknown]
  - Loss of proprioception [Unknown]
  - Monoparesis [Unknown]
  - Ataxia [Unknown]
  - Sensory disturbance [Unknown]
  - Off label use [Unknown]
